FAERS Safety Report 9264179 (Version 1)
Quarter: 2013Q2

REPORT INFORMATION
  Report Type: Spontaneous
  Country: US (occurrence: US)
  Receive Date: 20130430
  Receipt Date: 20130430
  Transmission Date: 20140414
  Serious: Yes (Other)
  Sender: FDA-Public Use
  Company Number: US-PFIZER INC-2013130415

PATIENT
  Age: 61 Year
  Sex: Female
  Weight: 63.04 kg

DRUGS (7)
  1. LIPITOR [Suspect]
     Indication: BLOOD CHOLESTEROL INCREASED
     Dosage: UNK
     Dates: start: 1990
  2. GAVISCON [Concomitant]
     Indication: HIATUS HERNIA
     Dosage: UNK, AS NEEDED
  3. OMEPRAZOLE [Concomitant]
     Indication: GASTROOESOPHAGEAL REFLUX DISEASE
     Dosage: 40 MG, 1X/DAY
  4. AMBIEN [Concomitant]
     Indication: SLEEP DISORDER
     Dosage: 10 MG, UNK
  5. LYRICA [Concomitant]
     Indication: NEURALGIA
     Dosage: 150 MG, 2X/DAY
  6. HYDROXYCHLOROQUINE [Concomitant]
     Indication: ARTHRITIS
     Dosage: 200 MG, 2X/DAY
  7. VESICARE [Concomitant]
     Indication: URINARY INCONTINENCE
     Dosage: 10 MG, 1X/DAY

REACTIONS (2)
  - Lung neoplasm malignant [Unknown]
  - Basal cell carcinoma [Unknown]
